FAERS Safety Report 9041059 (Version 1)
Quarter: 2013Q1

REPORT INFORMATION
  Report Type: Spontaneous
  Country: US (occurrence: None)
  Receive Date: 20130124
  Receipt Date: 20130124
  Transmission Date: 20140127
  Serious: No
  Sender: FDA-Public Use
  Company Number: None

PATIENT
  Age: 60 Year
  Sex: Female
  Weight: 59.88 kg

DRUGS (3)
  1. CYMBALTA 30MG NOT KNOWN [Suspect]
     Indication: BACK PAIN
     Dosage: 1 TAB  30MG  1@ DAY  MOUTH
     Route: 048
     Dates: start: 20121227, end: 20121229
  2. CYMBALTA 30MG NOT KNOWN [Suspect]
     Indication: NERVE COMPRESSION
     Dosage: 1 TAB  30MG  1@ DAY  MOUTH
     Route: 048
     Dates: start: 20121227, end: 20121229
  3. CYMBALTA 30MG NOT KNOWN [Suspect]
     Indication: ANXIETY
     Dosage: 1 TAB  30MG  1@ DAY  MOUTH
     Route: 048
     Dates: start: 20121227, end: 20121229

REACTIONS (2)
  - Hot flush [None]
  - Chills [None]
